FAERS Safety Report 16710108 (Version 1)
Quarter: 2019Q3

REPORT INFORMATION
  Report Type: Spontaneous
  Country: JP (occurrence: JP)
  Receive Date: 20190816
  Receipt Date: 20190816
  Transmission Date: 20191004
  Serious: Yes (Other)
  Sender: FDA-Public Use
  Company Number: JP-ASTRAZENECA-2019SF14936

PATIENT
  Age: 40 Year
  Sex: Female

DRUGS (2)
  1. INSULIN [Suspect]
     Active Substance: INSULIN NOS
     Dosage: DOSE UNKNOWN
     Route: 065
  2. FORXIGA [Suspect]
     Active Substance: DAPAGLIFLOZIN
     Route: 048

REACTIONS (1)
  - Diabetic ketoacidosis [Recovered/Resolved]

NARRATIVE: CASE EVENT DATE: 20190802
